FAERS Safety Report 4628784-8 (Version None)
Quarter: 2005Q1

REPORT INFORMATION
  Report Type: 
  Country: None (occurrence: None)
  Receive Date: 20050107
  Receipt Date: 20040921
  Transmission Date: 20050727
  Serious: No
  Sender: FDA-Public Use
  Company Number: 234785K04USA

PATIENT
  Age: 39 Year
  Sex: Female

DRUGS (4)
  1. REBIF [Suspect]
     Indication: MULTIPLE SCLEROSIS
     Dates: start: 20020102
  2. NEURONTIN [Concomitant]
  3. TEGRETOL [Concomitant]
  4. AMITRIPTYLINE HCL [Concomitant]

REACTIONS (2)
  - DYSTONIA [None]
  - MUSCLE SPASMS [None]
